FAERS Safety Report 5169285-0 (Version None)
Quarter: 2006Q4

REPORT INFORMATION
  Report Type: 
  Country: None (occurrence: None)
  Receive Date: 20061201
  Receipt Date: 20061122
  Transmission Date: 20070319
  Serious: Yes (Other)
  Sender: FDA-Public Use
  Company Number: DE-2006-021510

PATIENT
  Sex: Female

DRUGS (2)
  1. BETAFERON [Suspect]
     Dosage: SUBCUTANEOUS
     Route: 058
     Dates: start: 20040101
  2. ANAFRANIL [Concomitant]

REACTIONS (6)
  - AUTOIMMUNE THYROIDITIS [None]
  - DIVERTICULUM [None]
  - HYPERTHYROIDISM [None]
  - MITRAL VALVE INCOMPETENCE [None]
  - MITRAL VALVE PROLAPSE [None]
  - WEIGHT DECREASED [None]
